FAERS Safety Report 10927006 (Version 1)
Quarter: 2015Q1

REPORT INFORMATION
  Report Type: Report from Study
  Country: NL (occurrence: NL)
  Receive Date: 20150318
  Receipt Date: 20150318
  Transmission Date: 20150721
  Serious: Yes (Hospitalization, Other)
  Sender: FDA-Public Use
  Company Number: PHHY2015NL028144

PATIENT
  Sex: Female

DRUGS (1)
  1. SANDOSTATIN LAR DEPOT [Suspect]
     Active Substance: OCTREOTIDE ACETATE
     Indication: NEUROENDOCRINE TUMOUR
     Dosage: 30 MG/2ML (ONCE EVERY 4 WEEKS)
     Route: 030

REACTIONS (4)
  - Transient ischaemic attack [Recovered/Resolved]
  - Paraesthesia [Unknown]
  - Hypoaesthesia oral [Unknown]
  - Hypertension [Unknown]

NARRATIVE: CASE EVENT DATE: 20150220
